FAERS Safety Report 6930984-9 (Version None)
Quarter: 2010Q3

REPORT INFORMATION
  Report Type: 
  Country: None (occurrence: None)
  Receive Date: 20100817
  Receipt Date: 20100817
  Transmission Date: 20110219
  Serious: Yes (Hospitalization)
  Sender: FDA-Public Use
  Company Number: None

PATIENT
  Sex: Female

DRUGS (18)
  1. DIGOXIN [Suspect]
     Indication: ATRIAL FIBRILLATION
     Dosage: 1 TAB TU,TH, SA 047 2 TABS M,W,F,SU
     Dates: start: 20100715, end: 20100728
  2. MULTAQ [Suspect]
     Indication: ATRIAL FIBRILLATION
     Dosage: 1 TAB BID 047
     Dates: start: 20100715
  3. DIFLUCAN [Concomitant]
  4. OMEPRAZOLE [Concomitant]
  5. ATIVAN [Concomitant]
  6. ASPIRIN [Concomitant]
  7. METOPROLOL TARTRATE [Concomitant]
  8. NAPROXEN [Concomitant]
  9. VITAMIN B-12 [Concomitant]
  10. FOLIC ACID [Concomitant]
  11. NORCO [Concomitant]
  12. IRON [Concomitant]
  13. URSODIOL [Concomitant]
  14. BONIVA [Concomitant]
  15. MIRTAZAPINE [Concomitant]
  16. CALTRATE [Concomitant]
  17. ASCORBIC ACID [Concomitant]
  18. ENSURE [Concomitant]

REACTIONS (1)
  - THERAPEUTIC AGENT TOXICITY [None]
